FAERS Safety Report 24392989 (Version 1)
Quarter: 2024Q4

REPORT INFORMATION
  Report Type: Spontaneous
  Country: US (occurrence: None)
  Receive Date: 20241003
  Receipt Date: 20241003
  Transmission Date: 20250114
  Serious: Yes (Disabling)
  Sender: Public
  Company Number: None

PATIENT
  Age: 78 Year
  Sex: Male

DRUGS (1)
  1. ENBREL [Suspect]
     Active Substance: ETANERCEPT
     Indication: Psoriasis
     Dosage: FREQUENCY : TWICE A DAY;?

REACTIONS (5)
  - Cerebrovascular accident [None]
  - Bedridden [None]
  - COVID-19 [None]
  - Escherichia infection [None]
  - Therapy interrupted [None]
